FAERS Safety Report 6693934-9 (Version None)
Quarter: 2010Q2

REPORT INFORMATION
  Report Type: 
  Country: None (occurrence: None)
  Receive Date: 20100423
  Receipt Date: 20100414
  Transmission Date: 20101027
  Serious: Yes (Hospitalization)
  Sender: FDA-Public Use
  Company Number: FR-PFIZER INC-2010046876

PATIENT
  Age: 85 Year
  Sex: Female

DRUGS (1)
  1. AMLOR [Suspect]
     Dosage: 5 MG, 1X/DAY
     Route: 048

REACTIONS (2)
  - CUTANEOUS LUPUS ERYTHEMATOSUS [None]
  - RASH MACULAR [None]
